FAERS Safety Report 14931439 (Version 1)
Quarter: 2018Q2

REPORT INFORMATION
  Report Type: Spontaneous
  Country: US (occurrence: US)
  Receive Date: 20180524
  Receipt Date: 20180524
  Transmission Date: 20180711
  Serious: Yes (Hospitalization)
  Sender: FDA-Public Use
  Company Number: US-ROCHE-2118745

PATIENT
  Age: 66 Year
  Sex: Male
  Weight: 79.45 kg

DRUGS (27)
  1. HYDROCHLORTHIAZID [Concomitant]
     Active Substance: HYDROCHLOROTHIAZIDE
     Route: 048
     Dates: start: 20120503
  2. ULTRAM [Concomitant]
     Active Substance: TRAMADOL HYDROCHLORIDE
     Route: 048
  3. SOLU-MEDROL [Concomitant]
     Active Substance: METHYLPREDNISOLONE SODIUM SUCCINATE
     Route: 042
  4. TRAMADOL HCL [Concomitant]
     Active Substance: TRAMADOL HYDROCHLORIDE
     Route: 048
     Dates: start: 20120503
  5. SENOKOT [Concomitant]
     Active Substance: SENNOSIDES
     Route: 048
     Dates: start: 20121106
  6. LIPITOR [Concomitant]
     Active Substance: ATORVASTATIN CALCIUM
     Route: 048
     Dates: start: 20120503
  7. LOTENSIN (UNITED STATES) [Concomitant]
     Route: 048
     Dates: start: 20120503
  8. MODAFINIL. [Concomitant]
     Active Substance: MODAFINIL
     Route: 048
  9. IBUPROFEN. [Concomitant]
     Active Substance: IBUPROFEN
     Route: 048
  10. TIZANIDINE. [Concomitant]
     Active Substance: TIZANIDINE
     Route: 048
  11. BACLOFEN. [Concomitant]
     Active Substance: BACLOFEN
     Dosage: 1MG/ML; 2000MCG=20ML
     Route: 037
  12. LEVO-T [Concomitant]
     Active Substance: LEVOTHYROXINE SODIUM
     Route: 048
     Dates: start: 20180330
  13. OCREVUS [Suspect]
     Active Substance: OCRELIZUMAB
     Dosage: LAST INFUSION ON 30/MAR/2018
     Route: 042
  14. PRILOSEC [Concomitant]
     Active Substance: OMEPRAZOLE MAGNESIUM
     Route: 048
     Dates: start: 20120503
  15. IMITREX [Concomitant]
     Active Substance: SUMATRIPTAN SUCCINATE
     Route: 048
  16. LYRICA [Concomitant]
     Active Substance: PREGABALIN
     Route: 048
     Dates: start: 20170504
  17. CYMBALTA [Concomitant]
     Active Substance: DULOXETINE HYDROCHLORIDE
     Route: 048
     Dates: start: 20150421
  18. CYMBALTA [Concomitant]
     Active Substance: DULOXETINE HYDROCHLORIDE
     Route: 048
     Dates: start: 20180330
  19. OCREVUS [Suspect]
     Active Substance: OCRELIZUMAB
     Indication: RELAPSING-REMITTING MULTIPLE SCLEROSIS
     Route: 042
     Dates: start: 20170922
  20. METHOCARBAMOL. [Concomitant]
     Active Substance: METHOCARBAMOL
     Route: 048
  21. OMEPRAZOLE. [Concomitant]
     Active Substance: OMEPRAZOLE
     Route: 048
  22. BACLOFEN. [Concomitant]
     Active Substance: BACLOFEN
     Route: 048
  23. ROBAXIN [Concomitant]
     Active Substance: METHOCARBAMOL
     Route: 048
     Dates: start: 20151106
  24. 4-AMINOPYRIDINE [Concomitant]
     Active Substance: DALFAMPRIDINE
     Route: 048
     Dates: start: 20171110
  25. VALIUM [Suspect]
     Active Substance: DIAZEPAM
     Indication: PRODUCT USED FOR UNKNOWN INDICATION
     Route: 048
     Dates: start: 20140424
  26. PROVIGIL [Concomitant]
     Active Substance: MODAFINIL
     Route: 048
     Dates: start: 20140424
  27. SUMATRIPTAN SUCCINATE. [Concomitant]
     Active Substance: SUMATRIPTAN SUCCINATE
     Route: 048
     Dates: start: 20151106

REACTIONS (4)
  - Pyrexia [Unknown]
  - Glucose urine present [Unknown]
  - Muscular weakness [Recovered/Resolved]
  - Fatigue [Unknown]

NARRATIVE: CASE EVENT DATE: 20180331
